FAERS Safety Report 9200058 (Version 4)
Quarter: 2013Q3

REPORT INFORMATION
  Report Type: Report from Study
  Country: DE (occurrence: DE)
  Receive Date: 20130329
  Receipt Date: 20130703
  Transmission Date: 20140515
  Serious: Yes (Hospitalization)
  Sender: FDA-Public Use
  Company Number: DE-PFIZER INC-2013097728

PATIENT
  Age: 53 Year
  Sex: Female
  Weight: 79 kg

DRUGS (11)
  1. DOXORUBICIN HCL [Suspect]
     Indication: BREAST CANCER
     Dosage: 60 MG/M2, EVERY 3 WEEKS (LAST DOSE PRIOR TO EVENT BECOMING SERIOUS: 18/JUN/2012
     Route: 042
     Dates: start: 20120326
  2. EXEMESTANE [Suspect]
     Indication: BREAST CANCER
     Dosage: 25 MG DAILY,  DATE OF LAST DOSE PRIOR TO SAE: 14DEC2012, 24FEB2013
     Route: 048
     Dates: start: 20120813
  3. ISCADOR [Concomitant]
     Dosage: UNK
     Dates: start: 20100729
  4. BONDRONAT [Concomitant]
     Dosage: 6 MG, 3 IN 1 WEEK
     Dates: start: 20100713
  5. RAMILICH [Concomitant]
     Dosage: 20 MG, UNK
     Dates: start: 201108
  6. EMEND [Concomitant]
     Dosage: 150 MG, UNK
     Dates: start: 20120416
  7. ALOXI [Concomitant]
     Dosage: 250 UG, UNK
     Dates: start: 20120416
  8. LACTULOSE [Concomitant]
     Dosage: 30 ML, UNK
     Dates: start: 20120618
  9. NOVAMIN [Concomitant]
     Dosage: 500 MG, UNK
     Dates: start: 20120529
  10. NOVAMIN [Concomitant]
     Dosage: UNK
     Dates: start: 20120618
  11. METOPROLOL [Concomitant]
     Dosage: UNK

REACTIONS (4)
  - Gamma-glutamyltransferase increased [Recovered/Resolved with Sequelae]
  - Cholangitis [Recovered/Resolved]
  - Pyrexia [Recovered/Resolved]
  - Device occlusion [Recovered/Resolved]
